FAERS Safety Report 5122937-0 (Version None)
Quarter: 2006Q4

REPORT INFORMATION
  Report Type: 
  Country: None (occurrence: None)
  Receive Date: 20061009
  Receipt Date: 20060712
  Transmission Date: 20070319
  Serious: Yes (Other)
  Sender: FDA-Public Use
  Company Number: US-ROCHE-455428

PATIENT
  Age: 77 Year
  Sex: Male
  Weight: 97.1 kg

DRUGS (1)
  1. XELODA [Suspect]
     Indication: COLON CANCER
     Dosage: FORM: PILL
     Route: 048
     Dates: start: 20060627, end: 20060718

REACTIONS (1)
  - ACNE [None]
